FAERS Safety Report 24436608 (Version 1)
Quarter: 2024Q4

REPORT INFORMATION
  Report Type: Spontaneous
  Country: ES (occurrence: ES)
  Receive Date: 20241015
  Receipt Date: 20241015
  Transmission Date: 20250115
  Serious: Yes (Hospitalization)
  Sender: RANBAXY
  Company Number: ES-AEMPS-1561072

PATIENT
  Age: 47 Year
  Sex: Male

DRUGS (6)
  1. OLANZAPINE [Interacting]
     Active Substance: OLANZAPINE
     Indication: Product used for unknown indication
     Dosage: 15 MILLIGRAM, UNK
     Route: 048
     Dates: start: 20240703, end: 20240703
  2. PREGABALIN [Interacting]
     Active Substance: PREGABALIN
     Indication: Product used for unknown indication
     Dosage: 524 MILLIGRAM , IN TOTAL
     Route: 048
     Dates: start: 20240703, end: 20240703
  3. TAPENTADOL [Interacting]
     Active Substance: TAPENTADOL
     Indication: Product used for unknown indication
     Dosage: 400 MILLIGRAM, IN TOTAL
     Route: 048
     Dates: start: 20240703, end: 20240703
  4. TOPIRAMATE [Interacting]
     Active Substance: TOPIRAMATE
     Indication: Product used for unknown indication
     Dosage: 750 MILLIGRAM, UNK
     Route: 048
     Dates: start: 20240703, end: 20240703
  5. CLONAZEPAM [Interacting]
     Active Substance: CLONAZEPAM
     Indication: Product used for unknown indication
     Dosage: 5.5 MILLIGRAM, UNK
     Route: 048
     Dates: start: 20240703, end: 20240703
  6. PAROXETINE [Interacting]
     Active Substance: PAROXETINE
     Indication: Product used for unknown indication
     Dosage: 180 MILLIGRAM, UNK
     Route: 048
     Dates: start: 20240703, end: 20240703

REACTIONS (3)
  - Depressed level of consciousness [Recovered/Resolved]
  - Trismus [Recovered/Resolved]
  - Intentional overdose [Recovered/Resolved]

NARRATIVE: CASE EVENT DATE: 20240703
